FAERS Safety Report 24701480 (Version 3)
Quarter: 2025Q1

REPORT INFORMATION
  Report Type: Report from Study
  Country: CA (occurrence: CA)
  Receive Date: 20241205
  Receipt Date: 20250207
  Transmission Date: 20250409
  Serious: Yes (Other)
  Sender: NOVARTIS
  Company Number: CA-002147023-NVSC2024CA230174

PATIENT
  Age: 69 Year
  Sex: Female

DRUGS (2)
  1. KESIMPTA [Suspect]
     Active Substance: OFATUMUMAB
     Indication: Relapsing-remitting multiple sclerosis
     Dosage: 20 MG, QMO
     Route: 058
     Dates: start: 20240830
  2. VITAMIN B12 [Concomitant]
     Active Substance: CYANOCOBALAMIN
     Indication: Product used for unknown indication
     Route: 065

REACTIONS (8)
  - Diabetes mellitus [Unknown]
  - Pancreatic carcinoma [Unknown]
  - Liver disorder [Unknown]
  - Chromaturia [Unknown]
  - Blood glucose abnormal [Unknown]
  - Hepatic enzyme increased [Unknown]
  - Yellow skin [Unknown]
  - Faeces pale [Unknown]

NARRATIVE: CASE EVENT DATE: 20241202
